FAERS Safety Report 15557958 (Version 3)
Quarter: 2018Q4

REPORT INFORMATION
  Report Type: Spontaneous
  Country: US (occurrence: US)
  Receive Date: 20181027
  Receipt Date: 20181105
  Transmission Date: 20190205
  Serious: Yes (Other)
  Sender: FDA-Public Use
  Company Number: US-009507513-1610USA015488

PATIENT
  Sex: Female
  Weight: 58.96 kg

DRUGS (2)
  1. IMPLANON [Suspect]
     Active Substance: ETONOGESTREL
     Dosage: 68 MG/3 YEARS
     Route: 059
     Dates: start: 20130214
  2. IMPLANON [Suspect]
     Active Substance: ETONOGESTREL
     Indication: CONTRACEPTION
     Dosage: 68 MG, UNK
     Route: 059
     Dates: start: 20120224, end: 20130214

REACTIONS (16)
  - Complication of device removal [Not Recovered/Not Resolved]
  - Bartholin^s cyst [Unknown]
  - Incision site complication [Recovered/Resolved]
  - Complication of device removal [Not Recovered/Not Resolved]
  - General anaesthesia [Recovered/Resolved]
  - Device breakage [Recovered/Resolved]
  - Headache [Unknown]
  - Incision site swelling [Recovered/Resolved]
  - Incorrect product administration duration [Unknown]
  - Complication of device removal [Not Recovered/Not Resolved]
  - Complication associated with device [Not Recovered/Not Resolved]
  - Incision site haemorrhage [Unknown]
  - Pyrexia [Recovered/Resolved]
  - Menstrual disorder [Not Recovered/Not Resolved]
  - Hypoaesthesia [Unknown]
  - Skin mass [Recovered/Resolved]

NARRATIVE: CASE EVENT DATE: 2013
